FAERS Safety Report 12158697 (Version 1)
Quarter: 2016Q1

REPORT INFORMATION
  Report Type: Spontaneous
  Country: US (occurrence: None)
  Receive Date: 20160307
  Receipt Date: 20160307
  Transmission Date: 20160526
  Serious: No
  Sender: FDA-Public Use
  Company Number: None

PATIENT
  Age: 13 Year
  Sex: Male

DRUGS (3)
  1. FOLIC ACID. [Concomitant]
     Active Substance: FOLIC ACID
  2. JADENU [Suspect]
     Active Substance: DEFERASIROX
     Indication: IRON METABOLISM DISORDER
     Route: 048
     Dates: start: 20150819
  3. PENICILLIN [Concomitant]
     Active Substance: PENICILLIN

REACTIONS (3)
  - Headache [None]
  - Muscle spasms [None]
  - Abdominal pain [None]

NARRATIVE: CASE EVENT DATE: 2016
